FAERS Safety Report 20737232 (Version 1)
Quarter: 2022Q2

REPORT INFORMATION
  Report Type: Report from Study
  Country: CA (occurrence: CA)
  Receive Date: 20220421
  Receipt Date: 20220421
  Transmission Date: 20220720
  Serious: Yes (Hospitalization)
  Sender: FDA-Public Use
  Company Number: CA-TEVA-2022-CA-2028253

PATIENT
  Age: 40 Year
  Sex: Male

DRUGS (2)
  1. CARBOPLATIN [Suspect]
     Active Substance: CARBOPLATIN
     Indication: Oropharyngeal squamous cell carcinoma
     Dosage: ON DAY 1
     Route: 065
  2. FLUOROURACIL [Suspect]
     Active Substance: FLUOROURACIL
     Indication: Oropharyngeal squamous cell carcinoma
     Dosage: 600 MG/M2 DAILY; RECEIVED 2 CYCLES
     Route: 050

REACTIONS (5)
  - Mucosal inflammation [Unknown]
  - Dysphagia [Unknown]
  - Laryngeal pain [Unknown]
  - Neutropenia [Unknown]
  - Febrile neutropenia [Unknown]
